FAERS Safety Report 23831196 (Version 2)
Quarter: 2024Q2

REPORT INFORMATION
  Report Type: Spontaneous
  Country: CN (occurrence: CN)
  Receive Date: 20240508
  Receipt Date: 20240513
  Transmission Date: 20240716
  Serious: Yes (Other)
  Sender: FDA-Public Use
  Company Number: CN-SANOFI-02032835

PATIENT
  Age: 62 Year
  Sex: Male

DRUGS (3)
  1. PRALUENT [Suspect]
     Active Substance: ALIROCUMAB
     Indication: Hyperlipidaemia
     Dosage: 75 MG, QOW
     Route: 058
     Dates: start: 20240423
  2. ZHI BI TAI [Concomitant]
     Dosage: UNK
  3. ZHI BI TAI [Concomitant]
     Dosage: UNK

REACTIONS (1)
  - Angina pectoris [Recovering/Resolving]

NARRATIVE: CASE EVENT DATE: 20240425
